FAERS Safety Report 22246932 (Version 6)
Quarter: 2023Q4

REPORT INFORMATION
  Report Type: Spontaneous
  Country: US (occurrence: US)
  Receive Date: 20230424
  Receipt Date: 20231108
  Transmission Date: 20240110
  Serious: Yes (Other)
  Sender: FDA-Public Use
  Company Number: US-BAYER-2023A055165

PATIENT
  Age: 12 Year
  Sex: Male

DRUGS (6)
  1. KOVALTRY [Suspect]
     Active Substance: ANTIHEMOPHILIC FACTOR, HUMAN RECOMBINANT
     Indication: Factor VIII deficiency
     Dosage: 1450 U, BIW (1305-1595) - SLOW IV ON MONDAY AND WEDNESDAYAND PRN FOR MINOR BREACKTHROUGH BLEEDS)
     Route: 042
     Dates: start: 202303
  2. KOVALTRY [Suspect]
     Active Substance: ANTIHEMOPHILIC FACTOR, HUMAN RECOMBINANT
     Indication: Factor VIII deficiency
     Dosage: 2400 U, OW (2160-26400 -  SLOW IV ON FRIDAY AND PRN FOR MAJOR BLEEDS)
     Route: 042
     Dates: start: 202303, end: 202303
  3. KOVALTRY [Suspect]
     Active Substance: ANTIHEMOPHILIC FACTOR, HUMAN RECOMBINANT
     Indication: Factor VIII deficiency
     Dosage: 2 DF, ONCE (TO TREAT THE TOOTH BLEED)
     Route: 042
     Dates: start: 202304, end: 202304
  4. KOVALTRY [Suspect]
     Active Substance: ANTIHEMOPHILIC FACTOR, HUMAN RECOMBINANT
     Indication: Factor VIII deficiency
     Dosage: 2 DF, ONCE (TO TREAT RIGHT ELBOW)
     Route: 042
     Dates: start: 202305, end: 202305
  5. KOVALTRY [Suspect]
     Active Substance: ANTIHEMOPHILIC FACTOR, HUMAN RECOMBINANT
     Indication: Factor VIII deficiency
     Dosage: 548/771 UNITS
     Route: 042
  6. KOVALTRY [Suspect]
     Active Substance: ANTIHEMOPHILIC FACTOR, HUMAN RECOMBINANT
     Indication: Factor VIII deficiency
     Dosage: 2212/2314 UNITS
     Route: 042

REACTIONS (8)
  - Tooth socket haemorrhage [Recovered/Resolved]
  - Traumatic haemorrhage [Not Recovered/Not Resolved]
  - Tooth socket haemorrhage [Recovered/Resolved]
  - Tooth socket haemorrhage [Recovered/Resolved]
  - Tooth socket haemorrhage [Recovered/Resolved]
  - Fall [None]
  - Tooth loss [Recovered/Resolved]
  - Tooth extraction [None]

NARRATIVE: CASE EVENT DATE: 20230410
